FAERS Safety Report 8778702 (Version 2)
Quarter: 2012Q4

REPORT INFORMATION
  Report Type: Report from Study
  Country: CA (occurrence: CA)
  Receive Date: 20120913
  Receipt Date: 20121005
  Transmission Date: 20130627
  Serious: Yes (Hospitalization)
  Sender: FDA-Public Use
  Company Number: CA-ROCHE-1119703

PATIENT
  Age: 73 Year
  Sex: Male
  Weight: 68.7 kg

DRUGS (9)
  1. ZELBORAF [Suspect]
     Indication: MALIGNANT MELANOMA
     Dosage: Date of last dose prior to SAE: 01/Sep/2012
     Route: 048
     Dates: start: 20120221, end: 20120906
  2. ZELBORAF [Suspect]
     Route: 065
     Dates: start: 20120910
  3. FUROSEMIDE [Concomitant]
     Route: 065
     Dates: start: 20120814, end: 20120903
  4. PROFERRIN [Concomitant]
     Route: 065
     Dates: start: 20120809
  5. ATENOL [Concomitant]
     Route: 065
     Dates: start: 20120628
  6. IRBESARTAN [Concomitant]
     Route: 065
  7. ATORVASTATIN [Concomitant]
     Route: 065
     Dates: start: 1990
  8. METFORMIN [Concomitant]
     Route: 065
     Dates: start: 2011
  9. ASPIRIN [Concomitant]
     Route: 065
     Dates: start: 2010

REACTIONS (2)
  - Pleuritic pain [Recovered/Resolved]
  - Back pain [Recovered/Resolved]
